FAERS Safety Report 9629815 (Version 1)
Quarter: 2013Q4

REPORT INFORMATION
  Report Type: Spontaneous
  Country: US (occurrence: US)
  Receive Date: 20131017
  Receipt Date: 20131017
  Transmission Date: 20140711
  Serious: Yes (Death, Other)
  Sender: FDA-Public Use
  Company Number: US-BRISTOL-MYERS SQUIBB COMPANY-19518968

PATIENT
  Sex: 0

DRUGS (1)
  1. ELIQUIS [Suspect]
     Dosage: STRENGTH-5MG TABLET

REACTIONS (2)
  - Death [Fatal]
  - Cardiac disorder [Unknown]
